FAERS Safety Report 5537588-3 (Version None)
Quarter: 2007Q4

REPORT INFORMATION
  Report Type: 
  Country: None (occurrence: None)
  Receive Date: 20071207
  Receipt Date: 20071128
  Transmission Date: 20080405
  Serious: Yes (Hospitalization)
  Sender: FDA-Public Use
  Company Number: US-AMGEN-QUU254428

PATIENT
  Sex: Female

DRUGS (1)
  1. ENBREL [Suspect]
     Indication: PSORIASIS
     Route: 058
     Dates: start: 19991201, end: 20000201

REACTIONS (6)
  - DIVERTICULITIS [None]
  - DRUG EFFECT DECREASED [None]
  - EYELID PTOSIS [None]
  - OVARIAN CYST [None]
  - PSORIASIS [None]
  - RECTOCELE [None]
